FAERS Safety Report 8197030-3 (Version None)
Quarter: 2012Q1

REPORT INFORMATION
  Report Type: 
  Country: None (occurrence: None)
  Receive Date: 20120309
  Receipt Date: 20120228
  Transmission Date: 20120608
  Serious: Yes (Hospitalization)
  Sender: FDA-Public Use
  Company Number: US-ELI_LILLY_AND_COMPANY-US201111009035

PATIENT
  Sex: Female

DRUGS (2)
  1. FORTEO [Suspect]
     Dosage: UNK
     Route: 065
  2. FORTEO [Suspect]
     Dosage: UNK, UNKNOWN

REACTIONS (3)
  - BACK PAIN [None]
  - HOSPITALISATION [None]
  - DIZZINESS [None]
